FAERS Safety Report 6738086-1 (Version None)
Quarter: 2010Q2

REPORT INFORMATION
  Report Type: 
  Country: None (occurrence: None)
  Receive Date: 20100520
  Receipt Date: 20100514
  Transmission Date: 20101027
  Serious: Yes (Other)
  Sender: FDA-Public Use
  Company Number: 011942

PATIENT
  Sex: Male

DRUGS (1)
  1. ALPROSTADIL [Suspect]
     Dosage: 13 INFUSIONS

REACTIONS (3)
  - CARDIOMYOPATHY [None]
  - DIABETIC FOOT [None]
  - TOE AMPUTATION [None]
